FAERS Safety Report 14741227 (Version 2)
Quarter: 2021Q2

REPORT INFORMATION
  Report Type: Report from Study
  Country: US (occurrence: US)
  Receive Date: 20180410
  Receipt Date: 20210518
  Transmission Date: 20210716
  Serious: Yes (Hospitalization, Other)
  Sender: FDA-Public Use
  Company Number: US-JNJFOC-20171123831

PATIENT
  Age: 77 Year
  Sex: Male

DRUGS (16)
  1. ASPIRIN. [Concomitant]
     Active Substance: ASPIRIN
  2. FLOMAX [Concomitant]
     Active Substance: TAMSULOSIN HYDROCHLORIDE
  3. SALBUTAMOL SULFATE [Concomitant]
     Active Substance: ALBUTEROL SULFATE
  4. METOPROLOL SUCCINATE. [Concomitant]
     Active Substance: METOPROLOL SUCCINATE
  5. CHLORPHENIRAMINE. [Concomitant]
     Active Substance: CHLORPHENIRAMINE
  6. LOMOTIL [Concomitant]
     Active Substance: ATROPINE SULFATE\DIPHENOXYLATE HYDROCHLORIDE
  7. IMBRUVICA [Suspect]
     Active Substance: IBRUTINIB
     Route: 048
     Dates: start: 20170106
  8. IBUPROFEN. [Suspect]
     Active Substance: IBUPROFEN
     Indication: PAIN
     Route: 065
     Dates: end: 201710
  9. PARACETAMOL [Concomitant]
     Active Substance: ACETAMINOPHEN
  10. METHYLPREDNISOLONE. [Concomitant]
     Active Substance: METHYLPREDNISOLONE
  11. TRAMADOL. [Concomitant]
     Active Substance: TRAMADOL
  12. LOPERAMIDE [Concomitant]
     Active Substance: LOPERAMIDE
  13. ELIQUIS [Concomitant]
     Active Substance: APIXABAN
  14. IMBRUVICA [Suspect]
     Active Substance: IBRUTINIB
     Indication: CHRONIC LYMPHOCYTIC LEUKAEMIA
     Route: 048
     Dates: start: 20150813
  15. ACYCLOVIR. [Concomitant]
     Active Substance: ACYCLOVIR
  16. LOTEMAX [Concomitant]
     Active Substance: LOTEPREDNOL ETABONATE

REACTIONS (6)
  - Nasopharyngitis [Unknown]
  - Internal haemorrhage [Unknown]
  - Pneumonia [Unknown]
  - Troponin increased [Unknown]
  - Atrial fibrillation [Unknown]
  - Pain [Unknown]

NARRATIVE: CASE EVENT DATE: 201712
